FAERS Safety Report 8891810 (Version 1)
Quarter: 2012Q4

REPORT INFORMATION
  Report Type: 
  Country: US (occurrence: US)
  Receive Date: 20121107
  Receipt Date: 20121107
  Transmission Date: 20130627
  Serious: No
  Sender: FDA-Public Use
  Company Number: US-AMGEN-USASP2011055725

PATIENT
  Sex: Female

DRUGS (5)
  1. ENBREL [Suspect]
     Indication: PSORIASIS
     Dosage: 50 mg, qwk
     Route: 058
     Dates: start: 200611, end: 2007
  2. ENBREL [Suspect]
     Dosage: UNK
  3. ENBREL [Suspect]
  4. SYNTHROID [Concomitant]
  5. CYTOMEL [Concomitant]
     Dosage: UNK UNK, qd

REACTIONS (2)
  - Suppressed lactation [Unknown]
  - Psoriasis [Recovered/Resolved]
